FAERS Safety Report 7844812-0 (Version None)
Quarter: 2011Q4

REPORT INFORMATION
  Report Type: 
  Country: None (occurrence: None)
  Receive Date: 20111025
  Receipt Date: 20111013
  Transmission Date: 20120403
  Serious: Yes (Hospitalization)
  Sender: FDA-Public Use
  Company Number: US-GLAXOSMITHKLINE-A0944353A

PATIENT
  Age: 66 Year
  Sex: Male
  Weight: 95.9 kg

DRUGS (15)
  1. LEVOTHYROXINE SODIUM [Concomitant]
  2. SULFAMETHOXAZOLE AND TRIMETHOPRIM DOUBLE STRENGTH [Concomitant]
  3. FISH OIL [Concomitant]
  4. VOTRIENT [Suspect]
     Indication: PRODUCT USED FOR UNKNOWN INDICATION
     Dosage: 800MG PER DAY
     Route: 048
  5. VITAMIN D [Concomitant]
  6. SINGULAIR [Concomitant]
  7. TEKTURNA [Concomitant]
  8. LIPITOR [Concomitant]
     Route: 065
  9. ADVAIR DISKUS 100/50 [Concomitant]
  10. MILK THISTLE [Concomitant]
  11. CELEBREX [Concomitant]
  12. TYLENOL-500 [Concomitant]
  13. TORSEMIDE [Concomitant]
  14. SPIRIVA [Concomitant]
  15. CENTRUM SILVER [Concomitant]

REACTIONS (9)
  - INSOMNIA [None]
  - LOCALISED INFECTION [None]
  - ARTHRALGIA [None]
  - NASOPHARYNGITIS [None]
  - WHEEZING [None]
  - PNEUMONIA [None]
  - DYSPNOEA [None]
  - COUGH [None]
  - FATIGUE [None]
